FAERS Safety Report 9093477 (Version 1)
Quarter: 2013Q1

REPORT INFORMATION
  Report Type: Spontaneous
  Country: BR (occurrence: BR)
  Receive Date: 20130218
  Receipt Date: 20130218
  Transmission Date: 20140127
  Serious: Yes (Hospitalization)
  Sender: FDA-Public Use
  Company Number: BR-ELI_LILLY_AND_COMPANY-BR201302002586

PATIENT
  Age: 53 Year
  Sex: Female
  Weight: 70 kg

DRUGS (4)
  1. EVISTA [Suspect]
     Indication: OSTEOPENIA
     Dosage: 60 MG, QD
     Route: 048
     Dates: start: 2008, end: 20130207
  2. LEVOTIROXINA [Concomitant]
     Indication: HYPOTHYROIDISM
     Dosage: 25 MG, QD
     Route: 065
     Dates: end: 20130207
  3. ATORVASTATINA [Concomitant]
     Indication: HYPERCHOLESTEROLAEMIA
     Dosage: 10 MG, QD
     Route: 065
     Dates: end: 20130207
  4. BONVIVA [Concomitant]
     Indication: OSTEOPENIA
     Dosage: 1 DF, MONTHLY (1/M)
     Route: 065
     Dates: end: 20130207

REACTIONS (2)
  - Femur fracture [Recovering/Resolving]
  - Fall [Recovering/Resolving]
